FAERS Safety Report 23155149 (Version 1)
Quarter: 2023Q4

REPORT INFORMATION
  Report Type: Report from Study
  Country: GB (occurrence: GB)
  Receive Date: 20231107
  Receipt Date: 20231107
  Transmission Date: 20240110
  Serious: Yes (Hospitalization)
  Sender: FDA-Public Use
  Company Number: GB-SANDOZ-SDZ2023GB019070

PATIENT
  Sex: Female

DRUGS (3)
  1. HYRIMOZ [Suspect]
     Active Substance: ADALIMUMAB-ADAZ
     Dosage: 40 MG, E2W, PREFILLED PEN
     Route: 058
  2. HYRIMOZ [Suspect]
     Active Substance: ADALIMUMAB-ADAZ
     Dosage: 40 MG.E2W, PREFILLED PEN
     Route: 058
  3. HYRIMOZ [Suspect]
     Active Substance: ADALIMUMAB-ADAZ
     Indication: Psoriasis
     Dosage: 80 MG, E2W, PREFILLED PEN
     Route: 058
     Dates: start: 20230816

REACTIONS (3)
  - Streptococcal infection [Unknown]
  - Herpes zoster [Unknown]
  - Malaise [Recovered/Resolved]
